FAERS Safety Report 15036817 (Version 1)
Quarter: 2018Q2

REPORT INFORMATION
  Report Type: Report from Study
  Country: IT (occurrence: IT)
  Receive Date: 20180620
  Receipt Date: 20180620
  Transmission Date: 20180711
  Serious: Yes (Life-Threatening)
  Sender: FDA-Public Use
  Company Number: IT-SA-2016SA114456

PATIENT
  Age: 41 Year
  Sex: Female
  Weight: 70 kg

DRUGS (15)
  1. LEVETIRACETAM. [Concomitant]
     Active Substance: LEVETIRACETAM
     Dosage: 1000 MG,QD
     Route: 048
     Dates: start: 20160115
  2. RANITIDINE. [Concomitant]
     Active Substance: RANITIDINE
     Dosage: 50 MG,QD
     Route: 042
     Dates: start: 20160509, end: 20160513
  3. ALEMTUZUMAB [Suspect]
     Active Substance: ALEMTUZUMAB
     Dosage: 12 MG,QD
     Route: 041
     Dates: start: 20170515, end: 20170517
  4. METHYLPREDNISOLONE. [Concomitant]
     Active Substance: METHYLPREDNISOLONE
     Indication: PROPHYLAXIS
     Dosage: 1 G,QD
     Route: 042
     Dates: start: 20160509, end: 20160511
  5. ALEMTUZUMAB [Suspect]
     Active Substance: ALEMTUZUMAB
     Indication: RELAPSING-REMITTING MULTIPLE SCLEROSIS
     Dosage: 12 MG,QD
     Route: 041
     Dates: start: 20160509, end: 20160513
  6. FOLIC ACID. [Concomitant]
     Active Substance: FOLIC ACID
     Dosage: 5 MG,QD
     Route: 048
     Dates: start: 201501, end: 201703
  7. LORATADINE. [Concomitant]
     Active Substance: LORATADINE
     Indication: PROPHYLAXIS
     Dosage: 10 MG,QD
     Route: 048
     Dates: start: 20160506, end: 20160508
  8. METHYLPREDNISOLONE. [Concomitant]
     Active Substance: METHYLPREDNISOLONE
     Dosage: 500 MG,QD
     Route: 042
     Dates: start: 20160512, end: 20160513
  9. PARACETAMOL [Concomitant]
     Active Substance: ACETAMINOPHEN
     Indication: PROPHYLAXIS
     Dosage: 1000 MG,QD
     Route: 048
     Dates: start: 20160509, end: 20160513
  10. FERROUS SULFATE. [Concomitant]
     Active Substance: FERROUS SULFATE
     Dosage: 105 MG,QD
     Route: 048
     Dates: start: 201501
  11. BACLOFEN. [Concomitant]
     Active Substance: BACLOFEN
     Dosage: 75 MG,QD
     Route: 048
     Dates: start: 201501
  12. RANITIDINE. [Concomitant]
     Active Substance: RANITIDINE
     Indication: PROPHYLAXIS
     Dosage: 50 MG,QD
     Route: 048
     Dates: start: 20160506, end: 20160508
  13. ONDANSETRON [Concomitant]
     Active Substance: ONDANSETRON
     Indication: PROPHYLAXIS
     Dosage: 4 MG,QD
     Route: 030
     Dates: start: 20160509, end: 20160513
  14. CHLORPHENAMINE MALEATE [Concomitant]
     Active Substance: CHLORPHENIRAMINE MALEATE
     Indication: PROPHYLAXIS
     Dosage: 10 MG,QD
     Route: 030
     Dates: start: 20160509, end: 20160513
  15. ACICLOVIR [Concomitant]
     Active Substance: ACYCLOVIR
     Indication: PROPHYLAXIS
     Dosage: 400 MG,QD
     Route: 048
     Dates: start: 20160509, end: 20160612

REACTIONS (10)
  - Klebsiella infection [Recovered/Resolved]
  - Lymphopenia [Recovered/Resolved]
  - Autoimmune thyroiditis [Recovered/Resolved with Sequelae]
  - Escherichia urinary tract infection [Recovered/Resolved]
  - Enterobacter infection [Recovering/Resolving]
  - Escherichia urinary tract infection [Recovered/Resolved]
  - Klebsiella infection [Recovered/Resolved]
  - Oral herpes [Recovered/Resolved]
  - Klebsiella infection [Recovered/Resolved]
  - Pneumonia [Recovered/Resolved]

NARRATIVE: CASE EVENT DATE: 20160609
